FAERS Safety Report 6527738-4 (Version None)
Quarter: 2010Q1

REPORT INFORMATION
  Report Type: 
  Country: None (occurrence: None)
  Receive Date: 20100106
  Receipt Date: 20091126
  Transmission Date: 20100710
  Serious: Yes (Hospitalization)
  Sender: FDA-Public Use
  Company Number: ES-NOVOPROD-271205

PATIENT
  Age: 59 Year
  Sex: Male
  Weight: 84 kg

DRUGS (6)
  1. NOVONORM [Suspect]
     Indication: TYPE 2 DIABETES MELLITUS
     Dosage: UNK
     Dates: start: 20030101, end: 20051101
  2. PROTAPHANE PENFILL [Concomitant]
  3. ATORVASTATIN CALCIUM [Concomitant]
     Dosage: 20 MG, QD
  4. IRBESARTAN [Concomitant]
     Dosage: 150 MG, QD
  5. ASPIRIN [Concomitant]
     Dosage: 100 MG, QD
  6. HIDROCLOROTIAZIDE [Concomitant]
     Dosage: 12.5 MG, QD

REACTIONS (1)
  - PNEUMONIA [None]
